FAERS Safety Report 4842610-3 (Version None)
Quarter: 2005Q4

REPORT INFORMATION
  Report Type: 
  Country: None (occurrence: None)
  Receive Date: 20051201
  Receipt Date: 20051121
  Transmission Date: 20060501
  Serious: Yes (Congenital Anomaly)
  Sender: FDA-Public Use
  Company Number: ZA-GLAXOSMITHKLINE-B0401310A

PATIENT
  Age: 11 Day
  Sex: Male

DRUGS (1)
  1. MALANIL [Suspect]
     Indication: MALARIA PROPHYLAXIS
     Dates: start: 20050222, end: 20050314

REACTIONS (2)
  - CYSTIC LYMPHANGIOMA [None]
  - DRUG EXPOSURE DURING PREGNANCY [None]
